FAERS Safety Report 9297001 (Version 1)
Quarter: 2013Q2

REPORT INFORMATION
  Report Type: Spontaneous
  Country: GB (occurrence: GB)
  Receive Date: 20130518
  Receipt Date: 20130518
  Transmission Date: 20140414
  Serious: Yes (Death, Other)
  Sender: FDA-Public Use
  Company Number: GB-BAXTER-2013BAX017732

PATIENT
  Age: 28 Year
  Sex: Female

DRUGS (8)
  1. AERRANE (ISOFLURANE) [Suspect]
     Indication: MAINTENANCE OF ANAESTHESIA
  2. FENTANYL [Suspect]
     Indication: INDUCTION OF ANAESTHESIA
     Dosage: 500 UG
     Route: 065
  3. ETOMIDATE [Suspect]
     Indication: INDUCTION OF ANAESTHESIA
     Route: 065
  4. SUXAMETHONIUM [Suspect]
     Indication: ENDOTRACHEAL INTUBATION
     Route: 065
  5. VECURONIUM [Suspect]
     Indication: NEUROMUSCULAR BLOCKADE
     Route: 065
  6. HEPARIN [Concomitant]
     Indication: EMBOLISM
     Route: 058
  7. ASPIRIN [Concomitant]
     Indication: EMBOLISM
     Route: 048
  8. PREDNISOLONE [Concomitant]
     Indication: LIVER DISORDER
     Route: 065

REACTIONS (2)
  - Death [Fatal]
  - Exposure during pregnancy [Recovered/Resolved]
